FAERS Safety Report 5693901-8 (Version None)
Quarter: 2008Q2

REPORT INFORMATION
  Report Type: 
  Country: None (occurrence: None)
  Receive Date: 20080403
  Receipt Date: 20080305
  Transmission Date: 20081010
  Serious: Yes (Hospitalization, Other)
  Sender: FDA-Public Use
  Company Number: JP-PFIZER INC-2008009230

PATIENT
  Sex: Female
  Weight: 23.1 kg

DRUGS (5)
  1. ZOLOFT [Suspect]
     Indication: NEUROSIS
     Route: 048
     Dates: start: 20070101, end: 20080101
  2. CLEAMINE [Concomitant]
     Route: 048
  3. ALOSENN [Concomitant]
     Route: 048
  4. PRIMPERAN INJ [Concomitant]
     Route: 048
  5. LORAZEPAM [Concomitant]
     Route: 048

REACTIONS (3)
  - CONVULSION [None]
  - LOSS OF CONSCIOUSNESS [None]
  - OVERDOSE [None]
